FAERS Safety Report 12485269 (Version 1)
Quarter: 2016Q2

REPORT INFORMATION
  Report Type: Spontaneous
  Country: US (occurrence: US)
  Receive Date: 20160621
  Receipt Date: 20160621
  Transmission Date: 20160815
  Serious: Yes (Hospitalization)
  Sender: FDA-Public Use
  Company Number: US-SA-2016SA109714

PATIENT
  Age: 75 Year
  Sex: Female

DRUGS (1)
  1. PARACETAMOL/ACETYLSALICYLIC ACID/CAFFEINE [Suspect]
     Active Substance: ACETAMINOPHEN\ASPIRIN\CAFFEINE
     Indication: MIGRAINE
     Route: 065

REACTIONS (4)
  - Oesophageal mucosal dissection [Recovered/Resolved]
  - Haematemesis [Recovered/Resolved]
  - Hypotension [Recovered/Resolved]
  - Vomiting projectile [Recovered/Resolved]
